FAERS Safety Report 8813607 (Version 2)
Quarter: 2012Q4

REPORT INFORMATION
  Report Type: 
  Country: US (occurrence: US)
  Receive Date: 20120927
  Receipt Date: 20121011
  Transmission Date: 20130627
  Serious: Yes (Hospitalization)
  Sender: FDA-Public Use
  Company Number: US-OPTIMER-20120128

PATIENT
  Age: 38 Year
  Sex: Female
  Weight: 90.4 kg

DRUGS (2)
  1. DIFICID [Suspect]
     Indication: CLOSTRIDIUM DIFFICILE COLITIS
     Dosage: 200 mg, bid
     Route: 048
     Dates: start: 20120828, end: 20120902
  2. DIFICID [Suspect]
     Dosage: 200 mg, bid
     Route: 048
     Dates: start: 20120913, end: 20120917

REACTIONS (5)
  - Neutropenia [Recovering/Resolving]
  - Pyrexia [Recovering/Resolving]
  - Abdominal pain [Unknown]
  - Diarrhoea [Recovered/Resolved]
  - White blood cell count decreased [None]
